FAERS Safety Report 7966394 (Version 2)
Quarter: 2014Q1

REPORT INFORMATION
  Report Type: Spontaneous
  Country: US (occurrence: US)
  Receive Date: 20110531
  Receipt Date: 20140220
  Transmission Date: 20141002
  Serious: Yes (Hospitalization)
  Sender: FDA-Public Use
  Company Number: US-ASTELLAS-2011US002512

PATIENT
  Age: 59 Year
  Sex: Male

DRUGS (9)
  1. AMBISOME [Suspect]
     Indication: FUNGAL INFECTION
     Dosage: 5 MG/KG, UID/QD
     Route: 065
     Dates: start: 200909, end: 200910
  2. AMBISOME [Suspect]
     Indication: ZYGOMYCOSIS
     Dosage: UNK
     Route: 065
     Dates: start: 2009
  3. MYCAMINE [Concomitant]
     Indication: PRODUCT USED FOR UNKNOWN INDICATION
     Dosage: UNK
     Route: 065
  4. POSACONAZOLE [Concomitant]
     Indication: ZYGOMYCOSIS
     Dosage: UNK
     Route: 065
  5. VANCOMYCIN [Concomitant]
     Indication: PRODUCT USED FOR UNKNOWN INDICATION
     Dosage: UNK
     Route: 065
  6. CEFTAZIDIME [Concomitant]
     Indication: PNEUMONIA BACTERIAL
     Dosage: UNK
     Route: 065
  7. CYTARABINE [Concomitant]
     Indication: CHEMOTHERAPY
     Dosage: UNK
     Route: 065
  8. DAUNORUBICIN [Concomitant]
     Indication: CHEMOTHERAPY
     Dosage: UNK
     Route: 065
  9. HYDROXYUREA [Concomitant]
     Indication: ACUTE MYELOID LEUKAEMIA
     Dosage: UNK
     Route: 065

REACTIONS (2)
  - Hypokalaemia [Unknown]
  - Hypomagnesaemia [Unknown]
